FAERS Safety Report 5004569-8 (Version None)
Quarter: 2006Q2

REPORT INFORMATION
  Report Type: 
  Country: None (occurrence: None)
  Receive Date: 20060516
  Receipt Date: 20060516
  Transmission Date: 20061013
  Serious: Yes (Hospitalization, Disabling)
  Sender: FDA-Public Use
  Company Number: None

PATIENT
  Age: 29 Year
  Sex: Female
  Weight: 79.8331 kg

DRUGS (6)
  1. VIRAMUNE [Suspect]
     Indication: SYSTEMIC ANTIVIRAL TREATMENT
     Dosage: 1 TABLET DAILY/ 2 WEEKS PO
     Route: 048
     Dates: start: 20060314, end: 20060410
  2. VIRAMUNE [Suspect]
     Dosage: 2 TABLETS DAILY PO
     Route: 048
     Dates: start: 20060314, end: 20060410
  3. TRUVADA TABLETS [Concomitant]
  4. PRENATAL VITAMINS [Concomitant]
  5. LABETALOL [Concomitant]
  6. VALTRAX [Concomitant]

REACTIONS (2)
  - DRUG HYPERSENSITIVITY [None]
  - STEVENS-JOHNSON SYNDROME [None]
